FAERS Safety Report 8849286 (Version 1)
Quarter: 2012Q4

REPORT INFORMATION
  Report Type: 
  Country: US (occurrence: US)
  Receive Date: 20121019
  Receipt Date: 20121019
  Transmission Date: 20130627
  Serious: Yes (Hospitalization, Other)
  Sender: FDA-Public Use
  Company Number: US-BAYER-2012-106341

PATIENT
  Age: 36 Year
  Sex: Female

DRUGS (2)
  1. YASMIN [Suspect]
  2. PERCOCET [Concomitant]
     Indication: PAIN
     Dosage: UNK UNK, PRN

REACTIONS (3)
  - Gallbladder disorder [None]
  - Pulmonary embolism [None]
  - Deep vein thrombosis [None]
